FAERS Safety Report 4660350-0 (Version None)
Quarter: 2005Q2

REPORT INFORMATION
  Report Type: 
  Country: None (occurrence: None)
  Receive Date: 20050512
  Receipt Date: 20050511
  Transmission Date: 20051028
  Serious: Yes (Other)
  Sender: FDA-Public Use
  Company Number: PHBS2005FI06579

PATIENT
  Sex: Female

DRUGS (2)
  1. LEPONEX [Suspect]
     Indication: SCHIZOPHRENIA
     Route: 048
  2. LEPONEX [Suspect]
     Dosage: LOWERED DOSE

REACTIONS (1)
  - OBSESSIVE-COMPULSIVE DISORDER [None]
